FAERS Safety Report 17218532 (Version 2)
Quarter: 2020Q1

REPORT INFORMATION
  Report Type: Spontaneous
  Country: IE (occurrence: IE)
  Receive Date: 20191231
  Receipt Date: 20200214
  Transmission Date: 20200409
  Serious: Yes (Other)
  Sender: FDA-Public Use
  Company Number: IE-AMGEN-IRLSP2019213247

PATIENT
  Age: 57 Year
  Sex: Male
  Weight: 81 kg

DRUGS (1)
  1. AMGEVITA [Suspect]
     Active Substance: ADALIMUMAB
     Indication: ANKYLOSING SPONDYLITIS
     Dosage: 40 MILLIGRAM, Q2WK
     Route: 058
     Dates: start: 20191101, end: 20191129

REACTIONS (9)
  - Anxiety [Recovered/Resolved]
  - Hallucination, auditory [Recovered/Resolved]
  - Nightmare [Recovered/Resolved]
  - Nausea [Recovered/Resolved]
  - Agitation [Recovered/Resolved]
  - Hallucination [Unknown]
  - Insomnia [Recovered/Resolved]
  - Mood altered [Recovered/Resolved]
  - Pruritus [Recovered/Resolved]

NARRATIVE: CASE EVENT DATE: 201911
